FAERS Safety Report 9608389 (Version 2)
Quarter: 2013Q4

REPORT INFORMATION
  Report Type: Spontaneous
  Country: IT (occurrence: None)
  Receive Date: 20131007
  Receipt Date: 20131107
  Transmission Date: 20140711
  Serious: Yes (Death, Hospitalization, Other)
  Sender: FDA-Public Use
  Company Number: COR_00022_2013

PATIENT
  Age: 64 Year
  Sex: Male
  Weight: 90 kg

DRUGS (7)
  1. LOMUSTINE [Suspect]
     Indication: GLIOBLASTOMA
     Dosage: 100 MG/M2 1X/6 WEEKS ORAL
     Route: 048
     Dates: start: 20120619
  2. BLINDED STUDY DRUG [Suspect]
     Indication: GLIOBLASTOMA
     Dates: start: 20120613, end: 201210
  3. FLECAINIDE [Concomitant]
  4. DEXAMETHASONE [Concomitant]
  5. LEVOTHYROXINE [Concomitant]
  6. ACETYLSALICYLIC ACID [Concomitant]
  7. URSODEOXYCHOLIC ACID [Concomitant]

REACTIONS (14)
  - Status epilepticus [None]
  - Hypertransaminasaemia [None]
  - Hypertriglyceridaemia [None]
  - Hepatic steatosis [None]
  - Blood glucose increased [None]
  - Convulsion [None]
  - Toxicity to various agents [None]
  - Malignant neoplasm progression [None]
  - Glioblastoma [None]
  - Blood cholesterol increased [None]
  - Cytomegalovirus test positive [None]
  - Cytomegalovirus test positive [None]
  - Epstein-Barr virus antibody positive [None]
  - Glycosylated haemoglobin increased [None]
